FAERS Safety Report 12384821 (Version 1)
Quarter: 2016Q2

REPORT INFORMATION
  Report Type: Spontaneous
  Country: US (occurrence: None)
  Receive Date: 20160518
  Receipt Date: 20160518
  Transmission Date: 20160815
  Serious: No
  Sender: FDA-Public Use
  Company Number: None

PATIENT
  Age: 58 Year
  Sex: Male

DRUGS (1)
  1. ZECUITY [Suspect]
     Active Substance: SUMATRIPTAN SUCCINATE
     Indication: MIGRAINE
     Dosage: BID TOPICAL/PATCH
     Route: 061
     Dates: start: 20160210, end: 20160509

REACTIONS (3)
  - Application site erythema [None]
  - Application site pruritus [None]
  - Application site irritation [None]

NARRATIVE: CASE EVENT DATE: 20160509
